FAERS Safety Report 23678209 (Version 3)
Quarter: 2025Q4

REPORT INFORMATION
  Report Type: Spontaneous
  Country: EU (occurrence: EU)
  Receive Date: 20240327
  Receipt Date: 20251211
  Transmission Date: 20260118
  Serious: Yes (Other)
  Sender: VERTEX
  Company Number: None

PATIENT
  Age: 6 Year
  Sex: Female
  Weight: 15 kg

DRUGS (5)
  1. ELEXACAFTOR\IVACAFTOR\TEZACAFTOR [Suspect]
     Active Substance: ELEXACAFTOR\IVACAFTOR\TEZACAFTOR
     Indication: Cystic fibrosis
     Dosage: 37.5 MG IVA/ 25MG TEZA/ 50MG IVA TABLETS; 2 TAB IN AM
     Dates: start: 20230627, end: 20240216
  2. ELEXACAFTOR\IVACAFTOR\TEZACAFTOR [Suspect]
     Active Substance: ELEXACAFTOR\IVACAFTOR\TEZACAFTOR
     Dosage: 37.5 MG IVA/ 25MG TEZA/ 50MG IVA TABLETS; 1 TAB IN AM
     Dates: start: 202403
  3. KALYDECO [Suspect]
     Active Substance: IVACAFTOR
     Indication: Cystic fibrosis
     Dosage: 1 DOSAGE FORM
     Dates: start: 20230627, end: 20240216
  4. PANCRELIPASE [Concomitant]
     Active Substance: PANCRELIPASE
     Dosage: 5 DOSAGE FORM, QD
  5. FLUTICASONE PROPIONATE [Concomitant]
     Active Substance: FLUTICASONE PROPIONATE
     Dosage: 250MG/DOSE

REACTIONS (4)
  - Ocular rosacea [Recovering/Resolving]
  - Rosacea [Recovering/Resolving]
  - Hordeolum [Not Recovered/Not Resolved]
  - Chalazion [Recovering/Resolving]

NARRATIVE: CASE EVENT DATE: 20230101
